FAERS Safety Report 4846239-2 (Version None)
Quarter: 2005Q4

REPORT INFORMATION
  Report Type: 
  Country: None (occurrence: None)
  Receive Date: 20051202
  Receipt Date: 20051202
  Transmission Date: 20060501
  Serious: Yes (Hospitalization)
  Sender: FDA-Public Use
  Company Number: None

PATIENT
  Sex: Male
  Weight: 90 kg

DRUGS (1)
  1. ROBAXIN [Suspect]
     Indication: NECK PAIN

REACTIONS (2)
  - DRUG HYPERSENSITIVITY [None]
  - PARAESTHESIA [None]
